FAERS Safety Report 4956521-6 (Version None)
Quarter: 2006Q1

REPORT INFORMATION
  Report Type: 
  Country: None (occurrence: None)
  Receive Date: 20060329
  Receipt Date: 20060317
  Transmission Date: 20060701
  Serious: Yes (Hospitalization)
  Sender: FDA-Public Use
  Company Number: US-MERCK-0603USA03061

PATIENT
  Age: 63 Year
  Sex: Male
  Weight: 107 kg

DRUGS (7)
  1. VIOXX [Suspect]
     Indication: ARTHRALGIA
     Route: 048
     Dates: start: 19991118, end: 20041001
  2. VIOXX [Suspect]
     Indication: SHOULDER PAIN
     Route: 048
     Dates: start: 19991118, end: 20041001
  3. ZESTRIL [Concomitant]
     Route: 065
  4. TOPROL-XL [Concomitant]
     Route: 065
  5. NEXIUM [Concomitant]
     Route: 065
  6. ASPIRIN [Concomitant]
     Route: 065
  7. LIPITOR [Concomitant]
     Route: 065

REACTIONS (4)
  - CHEST PAIN [None]
  - DEEP VEIN THROMBOSIS [None]
  - KNEE ARTHROPLASTY [None]
  - MYOCARDIAL INFARCTION [None]
